FAERS Safety Report 12331367 (Version 6)
Quarter: 2016Q2

REPORT INFORMATION
  Report Type: Spontaneous
  Country: ES (occurrence: ES)
  Receive Date: 20160504
  Receipt Date: 20160630
  Transmission Date: 20160815
  Serious: Yes (Other)
  Sender: FDA-Public Use
  Company Number: ES-OTSUKA-2016_009409

PATIENT
  Age: 50 Year
  Sex: Female

DRUGS (8)
  1. ABILIFY MAINTENA [Suspect]
     Active Substance: ARIPIPRAZOLE
     Dosage: 400 MG, EVERY 4 WEEKS
     Route: 030
  2. RIVOTRIL [Concomitant]
     Active Substance: CLONAZEPAM
     Indication: ANXIETY
     Dosage: 0.5 MG, 2 TABLETS ONCE DAILY AT 22:00
     Route: 048
     Dates: start: 20140912
  3. ABILIFY MAINTENA [Suspect]
     Active Substance: ARIPIPRAZOLE
     Indication: SCHIZOPHRENIA
     Dosage: 400 MG,EVERY 3 WEEKS
     Route: 030
     Dates: start: 20151021
  4. DUPHALAC [Concomitant]
     Active Substance: LACTULOSE
     Indication: PRODUCT USED FOR UNKNOWN INDICATION
     Dosage: 1-3 SACHETS/24 H, 10G STICK PER 15 ML SOLUTION, PRN
     Route: 048
     Dates: start: 20130211
  5. DEPAKINE [Concomitant]
     Active Substance: VALPROATE SODIUM
     Indication: PRODUCT USED FOR UNKNOWN INDICATION
     Dosage: 2200 MG, (AT 09:00) 600 MG (AT 09:00) - 800 MG (AT 13:00) - 800 MG (AT 20:00), TID
     Route: 048
     Dates: start: 20140205
  6. OLANZAPINE. [Concomitant]
     Active Substance: OLANZAPINE
     Indication: PRODUCT USED FOR UNKNOWN INDICATION
     Dosage: 5 MG, 2 TABLETS ( 1 TABLET AT 9:00 AND 1 TABLET AT 20:00), BID
     Route: 048
     Dates: start: 20150512
  7. RIVOTRIL [Concomitant]
     Active Substance: CLONAZEPAM
     Indication: INSOMNIA
     Dosage: 0.5 MG, 1- 3 TABLETS, PRN
     Route: 048
     Dates: start: 20140123
  8. DUMIROX [Concomitant]
     Active Substance: FLUVOXAMINE MALEATE
     Indication: PRODUCT USED FOR UNKNOWN INDICATION
     Dosage: 1.5 TABLETS, OD (AT 20:00)
     Route: 048
     Dates: start: 20150228

REACTIONS (2)
  - Hypertensive crisis [Recovered/Resolved]
  - Inappropriate schedule of drug administration [Recovered/Resolved]

NARRATIVE: CASE EVENT DATE: 20151021
